FAERS Safety Report 14519851 (Version 1)
Quarter: 2018Q1

REPORT INFORMATION
  Report Type: Spontaneous
  Country: US (occurrence: US)
  Receive Date: 20180212
  Receipt Date: 20180212
  Transmission Date: 20180509
  Serious: Yes (Life-Threatening)
  Sender: FDA-Public Use
  Company Number: None

PATIENT
  Age: 60 Year
  Sex: Female
  Weight: 101.61 kg

DRUGS (17)
  1. VITAMIN B COMPLEX [Concomitant]
     Active Substance: CYANOCOBALAMIN\DEXPANTHENOL\NIACINAMIDE\PYRIDOXINE HYDROCHLORIDE\RIBOFLAVIN 5^-PHOSPHATE SODIUM\THIAMINE HYDROCHLORIDE\VITAMIN B COMPLEX
  2. LITHIUM. [Concomitant]
     Active Substance: LITHIUM
  3. TUMS [Concomitant]
     Active Substance: CALCIUM CARBONATE
  4. LITHIUM CARBONATE 300MG [Suspect]
     Active Substance: LITHIUM CARBONATE
     Indication: FIBROMYALGIA
     Dosage: 300MG/2X/DAY  2  1X AT BEDTIME ORAL
     Route: 048
     Dates: start: 20171201, end: 20180112
  5. DEPAKOTE [Suspect]
     Active Substance: DIVALPROEX SODIUM
  6. LEVOTHYROXINE. [Concomitant]
     Active Substance: LEVOTHYROXINE
  7. OMEPRAZOLE. [Concomitant]
     Active Substance: OMEPRAZOLE
  8. THERA TABS [Concomitant]
  9. LITHIUM CARBONATE 300MG [Suspect]
     Active Substance: LITHIUM CARBONATE
     Indication: BIPOLAR DISORDER
     Dosage: 300MG/2X/DAY  2  1X AT BEDTIME ORAL
     Route: 048
     Dates: start: 20171201, end: 20180112
  10. RANITIDINE. [Concomitant]
     Active Substance: RANITIDINE
  11. INDERAL [Concomitant]
     Active Substance: PROPRANOLOL HYDROCHLORIDE
  12. DULOXETINE. [Concomitant]
     Active Substance: DULOXETINE
  13. CLONAZEPAM. [Concomitant]
     Active Substance: CLONAZEPAM
  14. BICARB [Concomitant]
     Active Substance: SODIUM BICARBONATE
  15. VITAMIN MULTI [Concomitant]
  16. LITHIUM CARBONATE 300MG [Suspect]
     Active Substance: LITHIUM CARBONATE
     Indication: INSOMNIA
     Dosage: 300MG/2X/DAY  2  1X AT BEDTIME ORAL
     Route: 048
     Dates: start: 20171201, end: 20180112
  17. ZYPREXA [Concomitant]
     Active Substance: OLANZAPINE

REACTIONS (2)
  - Alopecia [None]
  - Immune system disorder [None]

NARRATIVE: CASE EVENT DATE: 20171201
